FAERS Safety Report 4691090-X (Version None)
Quarter: 2005Q2

REPORT INFORMATION
  Report Type: 
  Country: None (occurrence: None)
  Receive Date: 20050610
  Receipt Date: 20050526
  Transmission Date: 20051028
  Serious: Yes (Hospitalization)
  Sender: FDA-Public Use
  Company Number: ERP05000087

PATIENT
  Age: 58 Year
  Sex: Female

DRUGS (1)
  1. FURADANTIN [Suspect]
     Indication: CYSTITIS
     Dosage: 1 UNIT, ORAL
     Route: 048
     Dates: start: 20050525, end: 20050525

REACTIONS (2)
  - HYPOTENSION [None]
  - URTICARIA [None]
